FAERS Safety Report 6447252-4 (Version None)
Quarter: 2009Q4

REPORT INFORMATION
  Report Type: 
  Country: None (occurrence: None)
  Receive Date: 20091119
  Receipt Date: 20091119
  Transmission Date: 20100525
  Serious: Yes (Other)
  Sender: FDA-Public Use
  Company Number: US-PFIZER INC-2009265185

PATIENT
  Sex: Male

DRUGS (11)
  1. DILANTIN-125 [Suspect]
     Dosage: 100 MG, UNK
  2. ARICEPT [Concomitant]
     Dosage: UNK
  3. CARVEDILOL [Concomitant]
     Dosage: UNK
  4. NAMENDA [Concomitant]
     Dosage: UNK
  5. LIPITOR [Concomitant]
     Dosage: UNK
  6. PLAVIX [Concomitant]
     Dosage: UNK
  7. FERROUS SULFATE TAB [Concomitant]
     Dosage: UNK
  8. HYDRALAZINE HYDROCHLORIDE/ISOSORBIDE DINITRATE [Concomitant]
     Dosage: UNK
  9. FINASTERIDE [Concomitant]
     Dosage: UNK
  10. SYNTHROID [Concomitant]
     Dosage: UNK
  11. LASIX [Concomitant]
     Dosage: UNK

REACTIONS (2)
  - BLOOD GLUCOSE DECREASED [None]
  - BLOOD PRESSURE DECREASED [None]
